FAERS Safety Report 8178548 (Version 3)
Quarter: 2013Q4

REPORT INFORMATION
  Report Type: Spontaneous
  Country: US (occurrence: US)
  Receive Date: 20111013
  Receipt Date: 20131125
  Transmission Date: 20140711
  Serious: Yes (Other)
  Sender: FDA-Public Use
  Company Number: US-JNJFOC-20111001573

PATIENT
  Age: 47 Year
  Sex: Female
  Weight: 74.84 kg

DRUGS (1)
  1. SIMPONI [Suspect]
     Indication: PSORIATIC ARTHROPATHY
     Route: 058
     Dates: start: 201105

REACTIONS (6)
  - Psoriasis [Not Recovered/Not Resolved]
  - Palpitations [Recovering/Resolving]
  - Bronchitis [Recovering/Resolving]
  - Product outer packaging issue [Unknown]
  - Drug dose omission [Not Recovered/Not Resolved]
  - Device failure [Unknown]
